FAERS Safety Report 7830037-1 (Version None)
Quarter: 2011Q4

REPORT INFORMATION
  Report Type: 
  Country: None (occurrence: None)
  Receive Date: 20111021
  Receipt Date: 20111011
  Transmission Date: 20120403
  Serious: Yes (Hospitalization)
  Sender: FDA-Public Use
  Company Number: US-JNJFOC-20091205687

PATIENT
  Sex: Male
  Weight: 48.5 kg

DRUGS (4)
  1. MERCAPTOPURINE [Concomitant]
  2. INFLIXIMAB [Suspect]
     Indication: INFLAMMATORY BOWEL DISEASE
     Route: 042
     Dates: start: 20040204
  3. MESALAMINE [Concomitant]
     Route: 048
  4. ANTIBIOTIC [Concomitant]
     Indication: INFLAMMATORY BOWEL DISEASE

REACTIONS (1)
  - ANAL ABSCESS [None]
